FAERS Safety Report 14993193 (Version 2)
Quarter: 2020Q2

REPORT INFORMATION
  Report Type: Report from Study
  Country: SK (occurrence: SK)
  Receive Date: 20180610
  Receipt Date: 20200511
  Transmission Date: 20200713
  Serious: Yes (Hospitalization)
  Sender: FDA-Public Use
  Company Number: PHHY2018SK016073

PATIENT
  Age: 56 Year
  Sex: Male

DRUGS (2)
  1. HERPESIN [Concomitant]
     Active Substance: ACYCLOVIR
     Indication: OPHTHALMIC HERPES ZOSTER
     Dosage: 3 AMP (250 MG), QD
     Route: 065
     Dates: start: 20180522
  2. GILENYA [Suspect]
     Active Substance: FINGOLIMOD HYDROCHLORIDE
     Indication: MULTIPLE SCLEROSIS
     Dosage: 0.5 MG, QD
     Route: 048
     Dates: start: 20140908

REACTIONS (3)
  - Somatic symptom disorder [Recovering/Resolving]
  - Arthralgia [Recovering/Resolving]
  - Spinal pain [Recovering/Resolving]

NARRATIVE: CASE EVENT DATE: 20180522
